FAERS Safety Report 8387478-6 (Version None)
Quarter: 2012Q2

REPORT INFORMATION
  Report Type: 
  Country: None (occurrence: None)
  Receive Date: 20120525
  Receipt Date: 20120521
  Transmission Date: 20120825
  Serious: Yes (Other)
  Sender: FDA-Public Use
  Company Number: PHHY2012FR028807

PATIENT
  Age: 61 Year
  Sex: Female

DRUGS (2)
  1. FORADIL [Suspect]
     Indication: ASTHMA
  2. QVAR 40 [Concomitant]

REACTIONS (2)
  - NEURILEMMOMA [None]
  - EOSINOPHILIA [None]
